FAERS Safety Report 4498682-1 (Version None)
Quarter: 2004Q4

REPORT INFORMATION
  Report Type: 
  Country: None (occurrence: None)
  Receive Date: 20041109
  Receipt Date: 20041109
  Transmission Date: 20050328
  Serious: No
  Sender: FDA-Public Use
  Company Number: None

PATIENT
  Age: 19 Year
  Sex: Male
  Weight: 63.9572 kg

DRUGS (3)
  1. CYMBALTA [Suspect]
     Indication: MAJOR DEPRESSION
     Dosage: 30 MG PO DAILY
     Route: 048
     Dates: start: 20041022, end: 20041101
  2. LEXAPRO [Concomitant]
  3. KLONOPIN [Concomitant]

REACTIONS (1)
  - HEADACHE [None]
